FAERS Safety Report 5614312-7 (Version None)
Quarter: 2008Q1

REPORT INFORMATION
  Report Type: 
  Country: None (occurrence: None)
  Receive Date: 20080205
  Receipt Date: 20080124
  Transmission Date: 20080703
  Serious: Yes (Other)
  Sender: FDA-Public Use
  Company Number: US-PFIZER INC-2007106241

PATIENT
  Sex: Male

DRUGS (1)
  1. CHANTIX [Suspect]
     Dates: start: 20071025, end: 20071212

REACTIONS (4)
  - ABNORMAL DREAMS [None]
  - LUNG NEOPLASM MALIGNANT [None]
  - LYMPHADENOPATHY [None]
  - SINUSITIS [None]
